FAERS Safety Report 9579075 (Version 1)
Quarter: 2013Q4

REPORT INFORMATION
  Report Type: Spontaneous
  Country: US (occurrence: US)
  Receive Date: 20131001
  Receipt Date: 20131001
  Transmission Date: 20140711
  Serious: No
  Sender: FDA-Public Use
  Company Number: US-AMGEN-USASP2013016187

PATIENT
  Age: 38 Year
  Sex: Female

DRUGS (3)
  1. ENBREL [Suspect]
     Indication: RHEUMATOID ARTHRITIS
     Dosage: 50 MG, QWK
     Dates: start: 20060415
  2. CELEBREX [Concomitant]
     Dosage: 200 MG, QD
     Dates: start: 200604
  3. METHOTREXATE [Concomitant]
     Dosage: 6 TABLETS WEEKLY
     Dates: start: 2006, end: 2011

REACTIONS (3)
  - Increased tendency to bruise [Not Recovered/Not Resolved]
  - Injection site pain [Not Recovered/Not Resolved]
  - Injection site bruising [Not Recovered/Not Resolved]
